FAERS Safety Report 8107762-0 (Version None)
Quarter: 2012Q1

REPORT INFORMATION
  Report Type: 
  Country: None (occurrence: None)
  Receive Date: 20120202
  Receipt Date: 20120126
  Transmission Date: 20120608
  Serious: Yes (Disabling, Other)
  Sender: FDA-Public Use
  Company Number: US-JNJFOC-20120112326

PATIENT
  Sex: Male
  Weight: 107.96 kg

DRUGS (2)
  1. NAPROXEN (ALEVE) [Concomitant]
     Indication: PAIN
     Route: 048
     Dates: start: 20101101, end: 20110701
  2. LEVAQUIN [Suspect]
     Indication: SCROTAL CYST
     Route: 048
     Dates: start: 20101222, end: 20110101

REACTIONS (21)
  - GENITAL SWELLING [None]
  - FEELING ABNORMAL [None]
  - ANAL SPHINCTER ATONY [None]
  - ABNORMAL LOSS OF WEIGHT [None]
  - RASH [None]
  - SKIN EXFOLIATION [None]
  - MUSCLE RUPTURE [None]
  - TENDON RUPTURE [None]
  - PAIN OF SKIN [None]
  - SCAR [None]
  - PHOTOSENSITIVITY REACTION [None]
  - AFFECTIVE DISORDER [None]
  - MOVEMENT DISORDER [None]
  - ERYTHEMA [None]
  - SKIN DISCOLOURATION [None]
  - ANORECTAL DISCOMFORT [None]
  - ANXIETY [None]
  - ARTHROPATHY [None]
  - HAEMORRHOIDS [None]
  - MALAISE [None]
  - PARANOIA [None]
